FAERS Safety Report 10270774 (Version 1)
Quarter: 2014Q1

REPORT INFORMATION
  Report Type: Spontaneous
  Country: US (occurrence: None)
  Receive Date: 20140306
  Receipt Date: 20140306
  Transmission Date: 20141002
  Serious: Yes (Disabling)
  Sender: FDA-Public Use
  Company Number: 163-21880-13072747

PATIENT
  Age: 77 Year
  Sex: Female

DRUGS (1)
  1. REVLIMID ( LENALIDOMIDE) (5 MILLIGRAM, CAPSULES) [Suspect]
     Indication: MYELODYSPLASTIC SYNDROME
     Dosage: 5 MG, 21 IN 21 D, PO
     Route: 048
     Dates: start: 20130624, end: 20130714

REACTIONS (3)
  - Platelet count decreased [None]
  - Fall [None]
  - Drug ineffective [None]
